FAERS Safety Report 17654781 (Version 1)
Quarter: 2020Q2

REPORT INFORMATION
  Report Type: Spontaneous
  Country: GB (occurrence: GB)
  Receive Date: 20200410
  Receipt Date: 20200410
  Transmission Date: 20200713
  Serious: Yes (Hospitalization)
  Sender: FDA-Public Use
  Company Number: GB-JNJFOC-20200401495

PATIENT
  Age: 60 Year
  Sex: Male
  Weight: 85.05 kg

DRUGS (2)
  1. RIVAROXABAN [Suspect]
     Active Substance: RIVAROXABAN
     Dosage: 20 MG, QD
     Route: 048
     Dates: end: 20000313
  2. RIVAROXABAN [Suspect]
     Active Substance: RIVAROXABAN
     Indication: DEEP VEIN THROMBOSIS
     Dosage: 30 MG, QD
     Route: 048
     Dates: start: 20200130

REACTIONS (4)
  - Peripheral swelling [Recovered/Resolved with Sequelae]
  - Compartment syndrome [Recovered/Resolved with Sequelae]
  - Pain in extremity [Unknown]
  - Epistaxis [Unknown]

NARRATIVE: CASE EVENT DATE: 20200305
